FAERS Safety Report 4454351-5 (Version None)
Quarter: 2004Q3

REPORT INFORMATION
  Report Type: 
  Country: None (occurrence: None)
  Receive Date: 20040920
  Receipt Date: 20040915
  Transmission Date: 20050211
  Serious: Yes (Hospitalization)
  Sender: FDA-Public Use
  Company Number: CH-MERCK-0409CHE00029

PATIENT

DRUGS (1)
  1. TIMOPTIC [Suspect]
     Route: 047

REACTIONS (1)
  - CARDIAC DISORDER [None]
